FAERS Safety Report 8707255 (Version 2)
Quarter: 2013Q4

REPORT INFORMATION
  Report Type: Spontaneous
  Country: US (occurrence: US)
  Receive Date: 20120803
  Receipt Date: 20131105
  Transmission Date: 20140711
  Serious: Yes (Disabling, Other)
  Sender: FDA-Public Use
  Company Number: US-009507513-1207USA011243

PATIENT
  Age: 85 Year
  Sex: Male

DRUGS (11)
  1. ZOCOR [Suspect]
     Dosage: 40 MG, UNK
     Route: 048
  2. VERAPAMIL HYDROCHLORIDE [Suspect]
     Dosage: 40 MG, TID
     Route: 048
  3. ACETAMINOPHEN (+) CODEINE PHOSPHATE [Concomitant]
  4. PANADEINE (ACETAMINOPHEN (+) CAFFEINE (+) CODEINE PHOSPHATE) [Concomitant]
  5. LISINOPRIL [Concomitant]
  6. QVAR [Concomitant]
  7. ALBUTEROL [Concomitant]
  8. SALMETEROL [Concomitant]
  9. BRIMONIDINE TARTRATE [Concomitant]
  10. ASPIRIN [Concomitant]
  11. FUROSEMIDE [Concomitant]

REACTIONS (3)
  - Hypokinesia [Unknown]
  - Blood creatine phosphokinase increased [Unknown]
  - Myositis [Unknown]
